FAERS Safety Report 10568424 (Version 1)
Quarter: 2014Q4

REPORT INFORMATION
  Report Type: Spontaneous
  Country: FR (occurrence: FR)
  Receive Date: 20141106
  Receipt Date: 20141106
  Transmission Date: 20150529
  Serious: Yes (Hospitalization)
  Sender: FDA-Public Use
  Company Number: FR-SA-2014SA151164

PATIENT
  Age: 58 Year
  Sex: Male

DRUGS (17)
  1. CELIPROLOL [Suspect]
     Active Substance: CELIPROLOL
     Route: 048
     Dates: end: 20140319
  2. CELIPROLOL [Suspect]
     Active Substance: CELIPROLOL
     Route: 048
     Dates: start: 20140320, end: 20140320
  3. LANTUS [Suspect]
     Active Substance: INSULIN GLARGINE
     Route: 058
     Dates: start: 20140322
  4. LANTUS [Suspect]
     Active Substance: INSULIN GLARGINE
     Route: 058
     Dates: end: 20140319
  5. XANAX [Suspect]
     Active Substance: ALPRAZOLAM
     Route: 048
     Dates: start: 20140320, end: 20140320
  6. DIFFU K [Concomitant]
     Active Substance: POTASSIUM CHLORIDE
     Indication: HYPOKALAEMIA
     Dosage: STRENGTH: 600 MG
     Route: 048
  7. LANTUS [Suspect]
     Active Substance: INSULIN GLARGINE
     Dosage: DOSE- SEVERAL UNITS
     Route: 058
     Dates: start: 20140320, end: 20140320
  8. SILDENAFIL CITRATE. [Suspect]
     Active Substance: SILDENAFIL CITRATE
     Route: 065
  9. NOVORAPID [Concomitant]
     Active Substance: INSULIN ASPART
  10. SPIRONOLACTONE. [Concomitant]
     Active Substance: SPIRONOLACTONE
  11. CANDESARTAN [Concomitant]
     Active Substance: CANDESARTAN
  12. PANTOPRAZOLE [Concomitant]
     Active Substance: PANTOPRAZOLE SODIUM
     Dosage: STRENGTH: 20 MG
  13. RAMIPRIL. [Concomitant]
     Active Substance: RAMIPRIL
  14. ATORVASTATIN [Concomitant]
     Active Substance: ATORVASTATIN
  15. KARDEGIC [Concomitant]
     Active Substance: ASPIRIN LYSINE
     Route: 048
  16. CITALOPRAM [Concomitant]
     Active Substance: CITALOPRAM HYDROBROMIDE
  17. METFORMIN [Concomitant]
     Active Substance: METFORMIN HYDROCHLORIDE

REACTIONS (4)
  - Coma [Recovered/Resolved]
  - Overdose [Unknown]
  - Hypotension [Recovered/Resolved]
  - Hypoglycaemia [Recovered/Resolved]

NARRATIVE: CASE EVENT DATE: 20140320
